FAERS Safety Report 7826939-2 (Version None)
Quarter: 2011Q4

REPORT INFORMATION
  Report Type: 
  Country: None (occurrence: None)
  Receive Date: 20111018
  Receipt Date: 20110930
  Transmission Date: 20120403
  Serious: Yes (Death, Hospitalization)
  Sender: FDA-Public Use
  Company Number: 2011MA014622

PATIENT
  Age: 60 Year
  Sex: Male

DRUGS (4)
  1. IRINOTECAN HCL [Suspect]
     Indication: RECTAL CANCER
  2. LEUCOVORIN CALCIUM [Suspect]
     Indication: RECTAL CANCER
  3. FLUOROURACIL [Suspect]
     Indication: RECTAL CANCER
  4. OXALIPLATIN [Suspect]
     Indication: RECTAL CANCER

REACTIONS (1)
  - RESPIRATORY FAILURE [None]
